FAERS Safety Report 6538151-8 (Version None)
Quarter: 2010Q1

REPORT INFORMATION
  Report Type: 
  Country: None (occurrence: None)
  Receive Date: 20100112
  Receipt Date: 20091212
  Transmission Date: 20100710
  Serious: Yes (Death, Other)
  Sender: FDA-Public Use
  Company Number: 2009EU004589

PATIENT
  Age: 57 Year
  Sex: Male

DRUGS (1)
  1. TACROLIMUS [Suspect]
     Indication: LIVER TRANSPLANT
     Dosage: 3 MG, UID/QD
     Dates: start: 20060201, end: 20060901

REACTIONS (6)
  - ANAEMIA [None]
  - BIOPSY BRAIN ABNORMAL [None]
  - NECROSIS [None]
  - PLATELET COUNT DECREASED [None]
  - PROGRESSIVE MULTIFOCAL LEUKOENCEPHALOPATHY [None]
  - WHITE BLOOD CELL COUNT DECREASED [None]
